FAERS Safety Report 21611342 (Version 1)
Quarter: 2022Q4

REPORT INFORMATION
  Report Type: Report from Study
  Country: US (occurrence: US)
  Receive Date: 20221117
  Receipt Date: 20221117
  Transmission Date: 20230112
  Serious: Yes (Hospitalization, Other)
  Sender: FDA-Public Use
  Company Number: US-ALLERGAN-2202280US

PATIENT
  Sex: Female

DRUGS (17)
  1. ATOGEPANT [Suspect]
     Active Substance: ATOGEPANT
     Indication: Migraine
     Dosage: UNK
  2. ATOGEPANT [Suspect]
     Active Substance: ATOGEPANT
     Dosage: UNK
  3. BRIVIACT [Concomitant]
     Active Substance: BRIVARACETAM
  4. LAMOTRIGINE [Concomitant]
     Active Substance: LAMOTRIGINE
  5. ZONISAMIDE [Concomitant]
     Active Substance: ZONISAMIDE
  6. ZOVIRAX [Concomitant]
     Active Substance: ACYCLOVIR
  7. CITALOPRAM [Concomitant]
     Active Substance: CITALOPRAM HYDROBROMIDE
  8. FOLIC ACID [Concomitant]
     Active Substance: FOLIC ACID
  9. VITAMIN D3 [Concomitant]
     Active Substance: CHOLECALCIFEROL
  10. MECLIZINE HYDROCHLORIDE [Concomitant]
     Active Substance: MECLIZINE HYDROCHLORIDE
  11. IRON [Concomitant]
     Active Substance: IRON
  12. VITAMIN B12 [Concomitant]
     Active Substance: CYANOCOBALAMIN
  13. ADVIL [Concomitant]
     Active Substance: IBUPROFEN
  14. VITAMINS NOS [Concomitant]
     Active Substance: VITAMINS
  15. VITAMIN C [Concomitant]
     Active Substance: ASCORBIC ACID
  16. CLONAZEPAM [Concomitant]
     Active Substance: CLONAZEPAM
  17. PROBIOTICS NOS [Concomitant]
     Active Substance: PROBIOTICS NOS

REACTIONS (5)
  - Joint injury [Unknown]
  - Skeletal injury [Unknown]
  - Fall [Recovered/Resolved]
  - Nasopharyngitis [Recovering/Resolving]
  - Swelling [Unknown]

NARRATIVE: CASE EVENT DATE: 20220101
